FAERS Safety Report 24769576 (Version 2)
Quarter: 2025Q1

REPORT INFORMATION
  Report Type: Spontaneous
  Country: US (occurrence: US)
  Receive Date: 20241224
  Receipt Date: 20250205
  Transmission Date: 20250409
  Serious: No
  Sender: ALEXION PHARMACEUTICALS
  Company Number: US-AstraZeneca-CH-00773671AP

PATIENT

DRUGS (1)
  1. BYDUREON BCISE [Suspect]
     Active Substance: EXENATIDE
     Indication: Diabetes mellitus
     Dosage: 2 MILLIGRAM, QW
     Route: 065

REACTIONS (8)
  - Needle issue [Unknown]
  - Wrong technique in product usage process [Unknown]
  - Device leakage [Unknown]
  - Incorrect dose administered [Unknown]
  - Disturbance in attention [Unknown]
  - Wrong technique in product usage process [Unknown]
  - Off label use [Unknown]
  - Insurance issue [Unknown]
